FAERS Safety Report 23090454 (Version 4)
Quarter: 2023Q4

REPORT INFORMATION
  Report Type: Report from Study
  Country: ES (occurrence: ES)
  Receive Date: 20231020
  Receipt Date: 20231206
  Transmission Date: 20240109
  Serious: Yes (Death)
  Sender: FDA-Public Use
  Company Number: ES-PFIZER INC-PV202300172372

PATIENT
  Age: 74 Year
  Sex: Male
  Weight: 91 kg

DRUGS (10)
  1. TAFAMIDIS [Suspect]
     Active Substance: TAFAMIDIS
     Indication: Cardiac amyloidosis
     Dosage: 61 MG, 1X/DAY
     Route: 048
     Dates: start: 20191008
  2. FUROSEMIDE [Concomitant]
     Active Substance: FUROSEMIDE
     Indication: Acquired ATTR amyloidosis
     Dosage: UNK
     Dates: start: 20191007
  3. FUROSEMIDE [Concomitant]
     Active Substance: FUROSEMIDE
     Indication: Cardiac disorder
     Dosage: UNK
     Dates: start: 20230330
  4. OMEPRAZOLE [Concomitant]
     Active Substance: OMEPRAZOLE
     Indication: Prophylaxis
     Dosage: UNK
     Dates: start: 20190101
  5. TRAMADOL [Concomitant]
     Active Substance: TRAMADOL\TRAMADOL HYDROCHLORIDE
     Indication: Pain prophylaxis
     Dosage: UNK
     Dates: start: 201910
  6. CHLORTHALIDONE\SPIRONOLACTONE [Concomitant]
     Active Substance: CHLORTHALIDONE\SPIRONOLACTONE
     Indication: Prophylaxis
     Dosage: UNK
     Dates: start: 202202
  7. ALLOPURINOL [Concomitant]
     Active Substance: ALLOPURINOL
     Indication: Hyperuricaemia
     Dosage: UNK
     Dates: start: 20220411
  8. RIVAROXABAN [Concomitant]
     Active Substance: RIVAROXABAN
     Indication: Cardiac disorder
     Dosage: UNK
     Dates: start: 20230331
  9. ASPIRIN [Concomitant]
     Active Substance: ASPIRIN
     Indication: Cardiac disorder
     Dosage: UNK
     Dates: start: 20230331
  10. ATORVASTATIN [Concomitant]
     Active Substance: ATORVASTATIN
     Indication: Cardiac disorder
     Dosage: UNK
     Dates: start: 20230330

REACTIONS (1)
  - Death [Fatal]

NARRATIVE: CASE EVENT DATE: 20231014
